FAERS Safety Report 19885068 (Version 1)
Quarter: 2021Q3

REPORT INFORMATION
  Report Type: Spontaneous
  Country: US (occurrence: US)
  Receive Date: 20210924
  Receipt Date: 20210924
  Transmission Date: 20211014
  Serious: Yes (Hospitalization)
  Sender: FDA-Public Use
  Company Number: None

PATIENT
  Age: 69 Year
  Sex: Male

DRUGS (1)
  1. CAPECITABINE 500 MG TAB [Suspect]
     Active Substance: CAPECITABINE
     Indication: DRUG THERAPY
     Dosage: 4 TABS BID PO ? SECTION B5?START  FIRST  FILL?STOP  NEVER FILL
     Route: 048

REACTIONS (1)
  - Dysphagia [None]

NARRATIVE: CASE EVENT DATE: 20210812
